FAERS Safety Report 5616579-8 (Version None)
Quarter: 2008Q1

REPORT INFORMATION
  Report Type: 
  Country: None (occurrence: None)
  Receive Date: 20080207
  Receipt Date: 20070807
  Transmission Date: 20080703
  Serious: No
  Sender: FDA-Public Use
  Company Number: A0668690A

PATIENT
  Age: 52 Year
  Sex: Female

DRUGS (1)
  1. PAXIL CR [Suspect]
     Indication: DEPRESSION
     Dosage: 40MG UNKNOWN
     Route: 048
     Dates: start: 20060101, end: 20070601

REACTIONS (5)
  - DISTURBANCE IN ATTENTION [None]
  - HOT FLUSH [None]
  - NERVOUSNESS [None]
  - NIGHT SWEATS [None]
  - TREMOR [None]
